FAERS Safety Report 9329414 (Version 1)
Quarter: 2013Q2

REPORT INFORMATION
  Report Type: Spontaneous
  Country: TN (occurrence: TN)
  Receive Date: 20130604
  Receipt Date: 20130604
  Transmission Date: 20140414
  Serious: Yes (Hospitalization)
  Sender: FDA-Public Use
  Company Number: TN-GLAXOSMITHKLINE-B0896634A

PATIENT
  Age: 38 Year
  Sex: Male

DRUGS (1)
  1. ZINNAT [Suspect]
     Indication: ANGINA PECTORIS
     Dosage: 250MG TWICE PER DAY
     Route: 048
     Dates: start: 20130512, end: 20130518

REACTIONS (1)
  - Myalgia [Recovering/Resolving]
